FAERS Safety Report 7713422-8 (Version None)
Quarter: 2011Q3

REPORT INFORMATION
  Report Type: 
  Country: None (occurrence: None)
  Receive Date: 20110826
  Receipt Date: 20110823
  Transmission Date: 20111222
  Serious: Yes (Hospitalization, Other)
  Sender: FDA-Public Use
  Company Number: KR-SANOFI-AVENTIS-2011SA052543

PATIENT
  Age: 57 Year
  Sex: Male
  Weight: 53 kg

DRUGS (4)
  1. LANTUS [Suspect]
     Dosage: DOSE:20 UNIT(S)
     Route: 058
     Dates: start: 20110726
  2. INSULIN MIXTARD [Suspect]
     Dosage: DOSE:30 UNIT(S)
     Route: 058
     Dates: end: 20110811
  3. INSULIN MIXTARD [Suspect]
     Dosage: DOSE:20 UNIT(S)
     Route: 058
     Dates: start: 20110726
  4. LANTUS [Suspect]
     Indication: DIABETES MELLITUS
     Dosage: DOSE:35 UNIT(S)
     Route: 058
     Dates: end: 20110812

REACTIONS (4)
  - HYPERGLYCAEMIA [None]
  - HYPOGLYCAEMIC UNCONSCIOUSNESS [None]
  - COLD SWEAT [None]
  - WRIST FRACTURE [None]
